FAERS Safety Report 12067187 (Version 2)
Quarter: 2016Q1

REPORT INFORMATION
  Report Type: Spontaneous
  Country: JP (occurrence: JP)
  Receive Date: 20160211
  Receipt Date: 20160307
  Transmission Date: 20160526
  Serious: Yes (Death, Life-Threatening, Disabling, Other)
  Sender: FDA-Public Use
  Company Number: JP-ELI_LILLY_AND_COMPANY-JP201602002285

PATIENT
  Age: 82 Year
  Sex: Male
  Weight: 53 kg

DRUGS (2)
  1. ERBITUX [Suspect]
     Active Substance: CETUXIMAB
     Indication: HYPOPHARYNGEAL CANCER
     Dosage: 600 MG, WEEKLY (1/W)
     Route: 042
     Dates: start: 20150824, end: 20150824
  2. ERBITUX [Suspect]
     Active Substance: CETUXIMAB
     Dosage: 375 MG, WEEKLY (1/W)
     Route: 042
     Dates: start: 20150831, end: 20150928

REACTIONS (6)
  - Stomatitis [Unknown]
  - Dermatitis acneiform [Unknown]
  - Cholecystitis acute [Recovered/Resolved with Sequelae]
  - Acute respiratory distress syndrome [Fatal]
  - Pancreatic enzymes increased [Recovering/Resolving]
  - Sepsis [Recovered/Resolved with Sequelae]

NARRATIVE: CASE EVENT DATE: 20150902
